FAERS Safety Report 5714673-4 (Version None)
Quarter: 2008Q2

REPORT INFORMATION
  Report Type: 
  Country: None (occurrence: None)
  Receive Date: 20080416
  Receipt Date: 20080128
  Transmission Date: 20081010
  Serious: No
  Sender: FDA-Public Use
  Company Number: DL2008071

PATIENT
  Age: 38 Year
  Sex: Female

DRUGS (1)
  1. MIFEPRISTONE [Suspect]
     Indication: ABORTION INDUCED
     Dosage: 200 MG, ORAL
     Route: 048
     Dates: start: 20080112

REACTIONS (1)
  - ABORTION INCOMPLETE [None]
